FAERS Safety Report 13134390 (Version 1)
Quarter: 2017Q1

REPORT INFORMATION
  Report Type: Spontaneous
  Country: US (occurrence: US)
  Receive Date: 20170120
  Receipt Date: 20170120
  Transmission Date: 20170428
  Serious: Yes (Other)
  Sender: FDA-Public Use
  Company Number: US-SAGENTPRD-2017-US-000006

PATIENT
  Sex: Female

DRUGS (1)
  1. LEVETIRACETAM INJECTION [Suspect]
     Active Substance: LEVETIRACETAM
     Dosage: 500 MG TWICE DAILY

REACTIONS (2)
  - Radiation skin injury [Unknown]
  - Erythema [Unknown]
